FAERS Safety Report 7427051 (Version 2)
Quarter: 2018Q4

REPORT INFORMATION
  Report Type: Spontaneous
  Country: FR (occurrence: FR)
  Receive Date: 20100621
  Receipt Date: 20181012
  Transmission Date: 20190205
  Serious: Yes (Hospitalization)
  Sender: FDA-Public Use
  Company Number: FR-PFIZER INC-2010072003

PATIENT
  Age: 60 Year
  Sex: Male

DRUGS (8)
  1. TAHOR [Concomitant]
     Active Substance: ATORVASTATIN CALCIUM
  2. COKENZEN [Concomitant]
     Active Substance: CANDESARTAN CILEXETIL\HYDROCHLOROTHIAZIDE
  3. BETAMETHASONE/CALCIPOTRIOL [Suspect]
     Active Substance: BETAMETHASONE DIPROPIONATE\CALCIPOTRIENE
     Indication: PSORIASIS
     Dosage: UNK
     Route: 003
     Dates: start: 2005, end: 20100328
  4. PRAXILENE [Concomitant]
     Active Substance: NAFRONYL
  5. KARDEGIC [Concomitant]
     Active Substance: ASPIRIN DL-LYSINE
  6. CHAMPIX [Suspect]
     Active Substance: VARENICLINE TARTRATE
     Indication: SMOKING CESSATION THERAPY
     Dosage: 2 DF, 1X/DAY
     Route: 048
     Dates: start: 20100303, end: 20100326
  7. LANZOR [Concomitant]
     Active Substance: LANSOPRAZOLE
  8. NICOTINE. [Concomitant]
     Active Substance: NICOTINE
     Dosage: UNK
     Dates: start: 20100322

REACTIONS (2)
  - Psoriasis [Recovered/Resolved]
  - Rash pustular [Recovered/Resolved]

NARRATIVE: CASE EVENT DATE: 20100322
